FAERS Safety Report 6273673-9 (Version None)
Quarter: 2009Q4

REPORT INFORMATION
  Report Type: 
  Country: None (occurrence: None)
  Receive Date: 20090715
  Receipt Date: 20090709
  Transmission Date: 20100525
  Serious: Yes (Death, Hospitalization)
  Sender: FDA-Public Use
  Company Number: 2009AL004316

PATIENT
  Age: 40 Year
  Sex: Male

DRUGS (13)
  1. DIAZEPAM TAB [Suspect]
     Indication: DRUG USE FOR UNKNOWN INDICATION
  2. CLONAZEPAM [Suspect]
     Indication: DRUG USE FOR UNKNOWN INDICATION
  3. ALPRAZOLAM EXTENDED-RELEASE [Suspect]
     Indication: DRUG USE FOR UNKNOWN INDICATION
     Dosage: 2 MG UNK UNK
  4. HALOPERIDOL LACTATE [Suspect]
     Indication: DRUG USE FOR UNKNOWN INDICATION
     Dosage: IM
     Route: 030
  5. PAROXETINE HCL [Concomitant]
  6. ABILIFY [Concomitant]
  7. PROPAVAN [Concomitant]
  8. CISORDINOL [Concomitant]
  9. NOZINAN [Concomitant]
  10. IMOVANE [Concomitant]
  11. ZYPREXA [Concomitant]
  12. ALPRAZOLAM EXTENDED-RELEASE [Suspect]
     Indication: DRUG USE FOR UNKNOWN INDICATION
     Dosage: 2 MG
  13. HALOPERIDOL LACTATE [Suspect]
     Indication: DRUG USE FOR UNKNOWN INDICATION
     Dosage: IM
     Route: 030

REACTIONS (6)
  - ANXIETY [None]
  - DELUSIONAL DISORDER, PERSECUTORY TYPE [None]
  - HYPERSOMNIA [None]
  - METABOLIC DISORDER [None]
  - SEXUAL DYSFUNCTION [None]
  - SNORING [None]
